FAERS Safety Report 9347543 (Version 7)
Quarter: 2014Q2

REPORT INFORMATION
  Report Type: Report from Study
  Country: BA (occurrence: BA)
  Receive Date: 20130614
  Receipt Date: 20140613
  Transmission Date: 20141212
  Serious: Yes (Other)
  Sender: FDA-Public Use
  Company Number: BA-BIOGENIDEC-2013BI051177

PATIENT
  Age: 49 Year
  Sex: Female
  Weight: 65 kg

DRUGS (3)
  1. BG00012 [Suspect]
     Indication: MULTIPLE SCLEROSIS
     Route: 048
     Dates: start: 20110208, end: 20130531
  2. PAROXETIN [Concomitant]
     Indication: DEPRESSION
     Route: 048
     Dates: start: 2007, end: 20130708
  3. TOCOPHEROL [Concomitant]
     Indication: MULTIPLE SCLEROSIS

REACTIONS (1)
  - Thrombocytopenia [Not Recovered/Not Resolved]
